FAERS Safety Report 13772122 (Version 2)
Quarter: 2017Q3

REPORT INFORMATION
  Report Type: Report from Study
  Country: MX (occurrence: MX)
  Receive Date: 20170720
  Receipt Date: 20170905
  Transmission Date: 20171127
  Serious: No
  Sender: FDA-Public Use
  Company Number: ALCN2017MX004471

PATIENT
  Age: 78 Year
  Sex: Female

DRUGS (3)
  1. DUOTRAV [BAC] [Suspect]
     Active Substance: TIMOLOL\TRAVOPROST
     Indication: OCULAR HYPERTENSION
     Dosage: 0.04 MG/5 MG 2.5 ML (AS REPORTED)
     Route: 047
     Dates: start: 201704, end: 201704
  2. TRAVATAN [Suspect]
     Active Substance: TRAVOPROST
     Indication: OCULAR HYPERTENSION
     Dosage: 1 DRP, QD (DAILY IN RIGHT EYE)
     Route: 047
     Dates: start: 2016
  3. TRAVATAN [Suspect]
     Active Substance: TRAVOPROST
     Dosage: 1 DRP, QD (DAILY IN RIGHT EYE)
     Route: 047

REACTIONS (1)
  - Eye irritation [Recovered/Resolved]

NARRATIVE: CASE EVENT DATE: 201704
